FAERS Safety Report 17950101 (Version 1)
Quarter: 2020Q2

REPORT INFORMATION
  Report Type: Spontaneous
  Country: DE (occurrence: DE)
  Receive Date: 20200626
  Receipt Date: 20200626
  Transmission Date: 20200714
  Serious: Yes (Other)
  Sender: FDA-Public Use
  Company Number: NVSC2020DE178993

PATIENT
  Sex: Female
  Weight: 54 kg

DRUGS (3)
  1. IBU 600 - 1 A PHARMA [Suspect]
     Active Substance: IBUPROFEN
     Indication: PRODUCT USED FOR UNKNOWN INDICATION
     Dosage: UNK
     Route: 065
  2. PANTOPRAZOL ACIS [Concomitant]
     Indication: PRODUCT USED FOR UNKNOWN INDICATION
     Dosage: 1 DF, QD
     Route: 065
     Dates: start: 20200615
  3. IBU 600 - 1 A PHARMA [Suspect]
     Active Substance: IBUPROFEN
     Dosage: 1800 MG, QD
     Route: 065
     Dates: start: 20200614

REACTIONS (8)
  - Polyneuropathy [Unknown]
  - Arthralgia [Unknown]
  - Concomitant disease aggravated [Unknown]
  - Spinal stenosis [Unknown]
  - Groin pain [Unknown]
  - Gait inability [Unknown]
  - Pain in extremity [Unknown]
  - Pain [Unknown]

NARRATIVE: CASE EVENT DATE: 20200615
